FAERS Safety Report 13602205 (Version 3)
Quarter: 2017Q3

REPORT INFORMATION
  Report Type: Spontaneous
  Country: KR (occurrence: KR)
  Receive Date: 20170601
  Receipt Date: 20170803
  Transmission Date: 20171127
  Serious: Yes (Hospitalization, Other)
  Sender: FDA-Public Use
  Company Number: KR-009507513-1704KOR005855

PATIENT
  Age: 44 Year
  Sex: Female
  Weight: 72 kg

DRUGS (20)
  1. EMEND (FOSAPREPITANT DIMEGLUMINE) [Suspect]
     Active Substance: FOSAPREPITANT DIMEGLUMINE
     Indication: PROPHYLAXIS OF NAUSEA AND VOMITING
     Dosage: 150 MG, ONCE
     Route: 042
     Dates: start: 20170116, end: 20170116
  2. ENDOXAN [Concomitant]
     Active Substance: CYCLOPHOSPHAMIDE
     Indication: BREAST CANCER FEMALE
     Dosage: 1056 MG, ONCE (CYCLE 1)
     Route: 042
     Dates: start: 20170116, end: 20170116
  3. NASERON [Concomitant]
     Dosage: 0.3 MG, ONCE (AMP)
     Route: 042
     Dates: start: 20170206, end: 20170206
  4. NASERON [Concomitant]
     Dosage: 0.3 MG, ONCE (AMP)
     Route: 042
     Dates: start: 20170320, end: 20170320
  5. ENDOXAN [Concomitant]
     Active Substance: CYCLOPHOSPHAMIDE
     Dosage: 1056 MG, ONCE (CYCLE 2)
     Route: 042
     Dates: start: 20170206, end: 20170206
  6. DEXAMETHASONE SODIUM PHOSPHATE. [Concomitant]
     Active Substance: DEXAMETHASONE SODIUM PHOSPHATE
     Dosage: 12 MG, ONCE (STRENGTH: 5MG/ML)
     Route: 042
     Dates: start: 20170320, end: 20170320
  7. NASERON [Concomitant]
     Indication: PREMEDICATION
     Dosage: 0.3 MG, ONCE (AMP)
     Route: 048
     Dates: start: 20170116, end: 20170116
  8. DOXORUBICIN HYDROCHLORIDE. [Concomitant]
     Active Substance: DOXORUBICIN HYDROCHLORIDE
     Indication: BREAST CANCER FEMALE
     Dosage: 105.6 MG, ONCE (CYCLE 1)
     Route: 042
     Dates: start: 20170116, end: 20170116
  9. DEXAMETHASONE SODIUM PHOSPHATE. [Concomitant]
     Active Substance: DEXAMETHASONE SODIUM PHOSPHATE
     Dosage: 12 MG, ONCE (STRENGTH: 5MG/ML)
     Route: 042
     Dates: start: 20170206, end: 20170206
  10. DOXORUBICIN HYDROCHLORIDE. [Concomitant]
     Active Substance: DOXORUBICIN HYDROCHLORIDE
     Dosage: 106.2 MG, ONCE (CYCLE 4)
     Route: 042
     Dates: start: 20170320, end: 20170320
  11. EMEND (FOSAPREPITANT DIMEGLUMINE) [Suspect]
     Active Substance: FOSAPREPITANT DIMEGLUMINE
     Dosage: 150 MG, ONCE
     Route: 042
     Dates: start: 20170206, end: 20170206
  12. DOXORUBICIN HYDROCHLORIDE. [Concomitant]
     Active Substance: DOXORUBICIN HYDROCHLORIDE
     Dosage: 105.6 MG, ONCE (CYCLE 2)
     Route: 042
     Dates: start: 20170206, end: 20170206
  13. DEXAMETHASONE SODIUM PHOSPHATE. [Concomitant]
     Active Substance: DEXAMETHASONE SODIUM PHOSPHATE
     Indication: PREMEDICATION
     Dosage: 12 MG, ONCE (STRENGTH: 5MG/ML)
     Route: 042
     Dates: start: 20170116, end: 20170116
  14. TYLENOL EXTENDED RELIEF CAPLETS [Concomitant]
     Active Substance: ACETAMINOPHEN
     Indication: PROPHYLAXIS
  15. HEXAMEDINE [Concomitant]
     Indication: PAIN PROPHYLAXIS
     Dosage: 15 ML, QD, ROUTE: GARGLE
     Dates: start: 20170116, end: 20170327
  16. EMEND (FOSAPREPITANT DIMEGLUMINE) [Suspect]
     Active Substance: FOSAPREPITANT DIMEGLUMINE
     Dosage: 150 MG, ONCE
     Route: 042
     Dates: start: 20170320, end: 20170320
  17. ENDOXAN [Concomitant]
     Active Substance: CYCLOPHOSPHAMIDE
     Dosage: 1062 MG, ONCE (CYCLE 4)
     Route: 042
     Dates: start: 20170320, end: 20170320
  18. TYLENOL EXTENDED RELIEF CAPLETS [Concomitant]
     Active Substance: ACETAMINOPHEN
     Indication: PAIN PROPHYLAXIS
     Dosage: 650 MG (1 TABLET), TID; AFTER EVERY CHEMOTHERAPY FOR 5 OR 7 DAYS
     Route: 048
     Dates: start: 20170116, end: 20170327
  19. MACPERAN [Concomitant]
     Active Substance: METOCLOPRAMIDE HYDROCHLORIDE
     Indication: PROPHYLAXIS OF NAUSEA AND VOMITING
     Dosage: 1 TABLET, TID; AFTER EVERY CHEMOTHERAPY FOR 5 OR 7 DAYS
     Route: 048
     Dates: start: 20170116, end: 20170327
  20. MAGO [Concomitant]
     Indication: CONSTIPATION PROPHYLAXIS
     Dosage: 250 MG (1 CAPSULE), TID
     Route: 048
     Dates: start: 20170116, end: 20170121

REACTIONS (2)
  - Febrile neutropenia [Recovered/Resolved]
  - Systemic infection [Recovered/Resolved]

NARRATIVE: CASE EVENT DATE: 20170126
